FAERS Safety Report 8045847-8 (Version None)
Quarter: 2012Q1

REPORT INFORMATION
  Report Type: 
  Country: None (occurrence: None)
  Receive Date: 20120113
  Receipt Date: 20120112
  Transmission Date: 20120608
  Serious: Yes (Death, Hospitalization)
  Sender: FDA-Public Use
  Company Number: CHPA2012US001121

PATIENT
  Age: 74 Year
  Sex: Female

DRUGS (6)
  1. GAS-X EXTRA STRENGTH [Suspect]
     Indication: FLATULENCE
     Dosage: 1-2 DF, EVERY 8 HOURS
     Route: 048
     Dates: start: 20110901
  2. VITAMINS NOS [Concomitant]
  3. PLAVIX [Concomitant]
  4. LISINOPRIL [Concomitant]
     Indication: HYPERTENSION
  5. DRUG THERAPY NOS [Concomitant]
  6. ASPIRIN [Concomitant]

REACTIONS (8)
  - RENAL IMPAIRMENT [None]
  - RENAL FAILURE [None]
  - URINARY TRACT INFECTION [None]
  - VOMITING [None]
  - DECREASED APPETITE [None]
  - PYREXIA [None]
  - FLATULENCE [None]
  - LOSS OF CONSCIOUSNESS [None]
